FAERS Safety Report 9714004 (Version 1)
Quarter: 2013Q4

REPORT INFORMATION
  Report Type: Spontaneous
  Country: US (occurrence: US)
  Receive Date: 20131126
  Receipt Date: 20131126
  Transmission Date: 20140711
  Serious: No
  Sender: FDA-Public Use
  Company Number: US-GILEAD-2008-0018564

PATIENT
  Age: 51 Year
  Sex: Female
  Weight: 52.62 kg

DRUGS (8)
  1. LETAIRIS [Suspect]
     Indication: COR PULMONALE CHRONIC
     Route: 048
     Dates: start: 20080314, end: 20080930
  2. FISH OIL [Concomitant]
  3. PREDNISONE [Concomitant]
  4. COUMADIN [Concomitant]
  5. DIGOXIN [Concomitant]
  6. ALDACTONE [Concomitant]
  7. IMURAN [Concomitant]
  8. ACTONEL [Concomitant]

REACTIONS (3)
  - Cough [Recovered/Resolved]
  - Dry throat [Recovered/Resolved]
  - Epistaxis [Recovered/Resolved]
